FAERS Safety Report 11079046 (Version 1)
Quarter: 2015Q2

REPORT INFORMATION
  Report Type: Spontaneous
  Country: US (occurrence: US)
  Receive Date: 20150430
  Receipt Date: 20150430
  Transmission Date: 20150821
  Serious: No
  Sender: FDA-Public Use
  Company Number: US-SHIRE-US201503757

PATIENT
  Age: 12 Year
  Sex: Male
  Weight: 31.75 kg

DRUGS (4)
  1. VYVANSE [Suspect]
     Active Substance: LISDEXAMFETAMINE DIMESYLATE
     Dosage: UNK (SMALL BOOST DOSE), 1X/DAY:QD (IN THE AFTERNOON)
     Route: 048
     Dates: start: 201502, end: 201504
  2. VYVANSE [Suspect]
     Active Substance: LISDEXAMFETAMINE DIMESYLATE
     Dosage: UNK, UNKNOWN
     Route: 048
     Dates: end: 201502
  3. VYVANSE [Suspect]
     Active Substance: LISDEXAMFETAMINE DIMESYLATE
     Dosage: UNK, UNKNOWN
     Route: 048
     Dates: start: 201504
  4. VYVANSE [Suspect]
     Active Substance: LISDEXAMFETAMINE DIMESYLATE
     Indication: ATTENTION DEFICIT/HYPERACTIVITY DISORDER
     Dosage: 70 MG, 1X/DAY:QD (IN THE MORNING)
     Route: 048
     Dates: start: 201502, end: 201504

REACTIONS (4)
  - Overdose [Unknown]
  - Abnormal behaviour [Recovered/Resolved]
  - Impulsive behaviour [Recovered/Resolved]
  - Inappropriate schedule of drug administration [Unknown]

NARRATIVE: CASE EVENT DATE: 201502
